FAERS Safety Report 5366534-0 (Version None)
Quarter: 2007Q2

REPORT INFORMATION
  Report Type: 
  Country: None (occurrence: None)
  Receive Date: 20070622
  Receipt Date: 20070611
  Transmission Date: 20071010
  Serious: Yes (Other)
  Sender: FDA-Public Use
  Company Number: US-PFIZER INC-2007048575

PATIENT
  Sex: Male
  Weight: 85.909 kg

DRUGS (5)
  1. LIPITOR [Suspect]
     Indication: BLOOD CHOLESTEROL INCREASED
     Dosage: DAILY DOSE:10MG
  2. VALSARTAN [Concomitant]
  3. CENTRUM [Concomitant]
  4. ACETYLSALICYLIC ACID SRT [Concomitant]
  5. ALL OTHER THERAPEUTIC PRODUCTS [Concomitant]

REACTIONS (3)
  - BODY HEIGHT DECREASED [None]
  - LARYNGEAL CANCER [None]
  - PROSTATE CANCER [None]
